FAERS Safety Report 13461868 (Version 1)
Quarter: 2017Q2

REPORT INFORMATION
  Report Type: Spontaneous
  Country: US (occurrence: US)
  Receive Date: 20170419
  Receipt Date: 20170419
  Transmission Date: 20170830
  Serious: Yes (Hospitalization)
  Sender: FDA-Public Use
  Company Number: None

PATIENT
  Age: 62 Year
  Sex: Female

DRUGS (1)
  1. REVLIMID [Suspect]
     Active Substance: LENALIDOMIDE
     Indication: LYMPHOMA
     Route: 048
     Dates: start: 20170228

REACTIONS (5)
  - Anaemia [None]
  - Cystitis [None]
  - Thrombocytopenia [None]
  - Haematuria [None]
  - Escherichia test positive [None]

NARRATIVE: CASE EVENT DATE: 20170322
